FAERS Safety Report 21044905 (Version 1)
Quarter: 2022Q3

REPORT INFORMATION
  Report Type: Spontaneous
  Country: US (occurrence: US)
  Receive Date: 20220705
  Receipt Date: 20220705
  Transmission Date: 20221027
  Serious: No
  Sender: FDA-Public Use
  Company Number: US-UPSHER-SMITH LABORATORIES, LLC-2022USL00297

PATIENT
  Age: 78 Year
  Sex: Male
  Weight: 77.098 kg

DRUGS (4)
  1. TESTOSTERONE [Suspect]
     Active Substance: TESTOSTERONE
     Indication: Myelofibrosis
     Dosage: 50 MG, 1X/DAY (2 PUMPS ON EACH SIDE) TO SHOULDERS AND A LITTLE DOWN THE ARMS
     Route: 061
     Dates: start: 20220421
  2. TESTOSTERONE [Suspect]
     Active Substance: TESTOSTERONE
     Indication: Fatigue
  3. TESTOSTERONE [Suspect]
     Active Substance: TESTOSTERONE
     Indication: Asthenia
  4. UNSPECIFIED INGREDIENT [Suspect]
     Active Substance: UNSPECIFIED INGREDIENT
     Indication: Myelofibrosis
     Dosage: UNK
     Dates: start: 20220428

REACTIONS (1)
  - Diarrhoea [Recovered/Resolved]

NARRATIVE: CASE EVENT DATE: 20220422
